FAERS Safety Report 8598426-8 (Version None)
Quarter: 2012Q3

REPORT INFORMATION
  Report Type: 
  Country: None (occurrence: None)
  Receive Date: 20120816
  Receipt Date: 20120802
  Transmission Date: 20120928
  Serious: Yes (Other)
  Sender: FDA-Public Use
  Company Number: AU-ROCHE-1059722

PATIENT
  Sex: Female

DRUGS (2)
  1. XELODA [Suspect]
     Indication: PRODUCT USED FOR UNKNOWN INDICATION
  2. XELODA [Suspect]

REACTIONS (6)
  - FATIGUE [None]
  - IMPAIRED GASTRIC EMPTYING [None]
  - SKIN FISSURES [None]
  - PALMAR-PLANTAR ERYTHRODYSAESTHESIA SYNDROME [None]
  - GAIT DISTURBANCE [None]
  - PAIN IN EXTREMITY [None]
